FAERS Safety Report 20668222 (Version 1)
Quarter: 2022Q2

REPORT INFORMATION
  Report Type: Spontaneous
  Country: DE (occurrence: DE)
  Receive Date: 20220404
  Receipt Date: 20220404
  Transmission Date: 20220720
  Serious: Yes (Other)
  Sender: FDA-Public Use
  Company Number: DE-TAKEDA-2021TUS051821

PATIENT
  Age: 21 Year
  Sex: Female

DRUGS (3)
  1. ENTYVIO [Suspect]
     Active Substance: VEDOLIZUMAB
     Indication: Crohn^s disease
     Dosage: UNK
     Route: 058
  2. METAMIZOLE [Concomitant]
     Active Substance: METAMIZOLE
     Dosage: UNK
  3. ACETAMINOPHEN [Concomitant]
     Active Substance: ACETAMINOPHEN
     Dosage: UNK

REACTIONS (12)
  - Crohn^s disease [Unknown]
  - Myalgia [Unknown]
  - COVID-19 [Unknown]
  - Platelet count increased [Unknown]
  - Stress [Unknown]
  - Eating disorder [Unknown]
  - Diarrhoea [Unknown]
  - Abdominal pain upper [Unknown]
  - Oedema [Unknown]
  - Abdominal pain [Unknown]
  - Dyspepsia [Unknown]
  - Muscle spasms [Unknown]
